FAERS Safety Report 5917998-2 (Version None)
Quarter: 2008Q4

REPORT INFORMATION
  Report Type: 
  Country: None (occurrence: None)
  Receive Date: 20081014
  Receipt Date: 20081008
  Transmission Date: 20090506
  Serious: Yes (Other)
  Sender: FDA-Public Use
  Company Number: CA-ASTRAZENECA-2008UW19240

PATIENT
  Age: 43 Year
  Sex: Female

DRUGS (1)
  1. ARIMIDEX [Suspect]
     Route: 048
     Dates: start: 20050101

REACTIONS (8)
  - AMENORRHOEA [None]
  - COGNITIVE DISORDER [None]
  - EMOTIONAL DISORDER [None]
  - EMOTIONAL DISTRESS [None]
  - MENOPAUSAL SYMPTOMS [None]
  - MENOPAUSE [None]
  - MENTAL DISORDER [None]
  - SEXUAL DYSFUNCTION [None]
